FAERS Safety Report 6043215-1 (Version None)
Quarter: 2009Q1

REPORT INFORMATION
  Report Type: 
  Country: None (occurrence: None)
  Receive Date: 20090119
  Receipt Date: 20080922
  Transmission Date: 20090719
  Serious: No
  Sender: FDA-Public Use
  Company Number: US-ABBOTT-08P-163-0477680-00

PATIENT
  Sex: Male
  Weight: 72.64 kg

DRUGS (1)
  1. BIAXIN GRANULES 250MG/5ML [Suspect]
     Indication: UPPER RESPIRATORY TRACT INFECTION
     Dosage: 250MG=1TSP, 2TSP TWICE DAILY
     Route: 048
     Dates: start: 20080921

REACTIONS (2)
  - BLOOD PRESSURE INCREASED [None]
  - NERVOUSNESS [None]
